FAERS Safety Report 19655581 (Version 1)
Quarter: 2021Q3

REPORT INFORMATION
  Report Type: Spontaneous
  Country: US (occurrence: US)
  Receive Date: 20210803
  Receipt Date: 20210803
  Transmission Date: 20211014
  Serious: Yes (Hospitalization)
  Sender: FDA-Public Use
  Company Number: None

PATIENT
  Sex: Female
  Weight: 74.25 kg

DRUGS (16)
  1. FERROUS SULFATE. [Concomitant]
     Active Substance: FERROUS SULFATE
  2. VITAMIN D3 [Concomitant]
     Active Substance: CHOLECALCIFEROL
  3. ONDANSETRON [Concomitant]
     Active Substance: ONDANSETRON
  4. EVEROLIMUS. [Suspect]
     Active Substance: EVEROLIMUS
     Indication: BREAST CANCER FEMALE
     Route: 048
  5. DEXAMETHASONE INTENSOL [Concomitant]
     Active Substance: DEXAMETHASONE
  6. NOVOLOG [Concomitant]
     Active Substance: INSULIN ASPART
  7. TRIMETHOPRIM. [Concomitant]
     Active Substance: TRIMETHOPRIM
  8. ALBUTEROL SULFATE. [Concomitant]
     Active Substance: ALBUTEROL SULFATE
  9. BUDENOSIDE [Concomitant]
     Active Substance: BUDESONIDE
  10. MOBIC [Concomitant]
     Active Substance: MELOXICAM
  11. METHENAMINE MANDELATE. [Concomitant]
     Active Substance: METHENAMINE MANDELATE
  12. BENZONATATE. [Concomitant]
     Active Substance: BENZONATATE
  13. ASPIRIN EC [Concomitant]
     Active Substance: ASPIRIN
  14. LETROZOLE. [Concomitant]
     Active Substance: LETROZOLE
  15. XGEVA [Concomitant]
     Active Substance: DENOSUMAB
  16. BASAGLAR KWIKPEN [Concomitant]
     Active Substance: INSULIN GLARGINE

REACTIONS (1)
  - Blood sodium decreased [None]
